FAERS Safety Report 6926091-1 (Version None)
Quarter: 2010Q3

REPORT INFORMATION
  Report Type: 
  Country: None (occurrence: None)
  Receive Date: 20100816
  Receipt Date: 20100804
  Transmission Date: 20110219
  Serious: Yes (Other)
  Sender: FDA-Public Use
  Company Number: US-PFIZER INC-2010098083

PATIENT
  Sex: Female

DRUGS (1)
  1. SUTENT [Suspect]
     Indication: MALIGNANT NEOPLASM OF RENAL PELVIS
     Dosage: 25 MG, UNK

REACTIONS (1)
  - SLEEP DISORDER [None]
